FAERS Safety Report 17554332 (Version 7)
Quarter: 2022Q3

REPORT INFORMATION
  Report Type: Spontaneous
  Country: JP (occurrence: JP)
  Receive Date: 20200318
  Receipt Date: 20220713
  Transmission Date: 20221026
  Serious: Yes (Hospitalization, Disabling, Other)
  Sender: FDA-Public Use
  Company Number: JP-GLAXOSMITHKLINE-JP2020JPN028186

PATIENT

DRUGS (6)
  1. RELENZA [Suspect]
     Active Substance: ZANAMIVIR
     Indication: Influenza
     Dosage: 10 MG, BID
     Route: 055
     Dates: start: 20200213, end: 20200213
  2. DEXTROMETHORPHAN HYDROBROMIDE [Concomitant]
     Active Substance: DEXTROMETHORPHAN HYDROBROMIDE
     Indication: Upper respiratory tract inflammation
     Dosage: 15 MG, TID
     Dates: start: 20200213, end: 20200213
  3. CARBOCYSTEINE [Concomitant]
     Active Substance: CARBOCYSTEINE
     Indication: Upper respiratory tract inflammation
     Dosage: 500 MG, TID
     Dates: start: 20200213, end: 20200213
  4. CETIRIZINE [Concomitant]
     Active Substance: CETIRIZINE HYDROCHLORIDE
     Indication: Rhinitis allergic
     Dosage: 10 MG, QD
     Dates: start: 20200213, end: 20200213
  5. CALONAL [Concomitant]
     Active Substance: ACETAMINOPHEN
     Indication: Upper respiratory tract inflammation
     Dosage: 300 MG, PRN
     Dates: start: 20200213, end: 20200213
  6. CALONAL [Concomitant]
     Active Substance: ACETAMINOPHEN
     Indication: Influenza

REACTIONS (14)
  - Abnormal behaviour [Recovered/Resolved]
  - Delirium febrile [Recovered/Resolved]
  - Fall [Not Recovered/Not Resolved]
  - Subdural haematoma [Recovered/Resolved]
  - Skull fractured base [Recovered/Resolved]
  - Pulmonary contusion [Recovered/Resolved]
  - Foot fracture [Recovered/Resolved]
  - Dislocation of vertebra [Recovered/Resolved with Sequelae]
  - Thoracic vertebral fracture [Recovered/Resolved with Sequelae]
  - Spinal cord injury [Not Recovered/Not Resolved]
  - Skull fracture [Recovered/Resolved]
  - Coma [Not Recovered/Not Resolved]
  - Paraplegia [Not Recovered/Not Resolved]
  - Paralysis [Not Recovered/Not Resolved]

NARRATIVE: CASE EVENT DATE: 20200101
